FAERS Safety Report 13143226 (Version 4)
Quarter: 2017Q2

REPORT INFORMATION
  Report Type: Spontaneous
  Country: IL (occurrence: IL)
  Receive Date: 20170123
  Receipt Date: 20170407
  Transmission Date: 20170830
  Serious: Yes (Other)
  Sender: FDA-Public Use
  Company Number: IL-SHIRE-IL201611381

PATIENT
  Age: 36 Year
  Sex: Female

DRUGS (4)
  1. IRON [Concomitant]
     Active Substance: IRON
     Indication: MINERAL SUPPLEMENTATION
     Dosage: UNK, UNKNOWN
     Route: 065
     Dates: start: 201703
  2. VPRIV [Suspect]
     Active Substance: VELAGLUCERASE ALFA
     Indication: GAUCHER^S DISEASE
     Dosage: 4000 IU, 1X/2WKS
     Route: 041
  3. VPRIV [Suspect]
     Active Substance: VELAGLUCERASE ALFA
     Dosage: 2000 IU (ALTERNATING WITH 2400 UNITS), 1X/2WKS
     Route: 041
     Dates: start: 201011
  4. VPRIV [Suspect]
     Active Substance: VELAGLUCERASE ALFA
     Dosage: 4800 IU, 1X/2WKS
     Route: 041

REACTIONS (2)
  - Gestational diabetes [Unknown]
  - Maternal exposure during pregnancy [Recovered/Resolved]

NARRATIVE: CASE EVENT DATE: 2016
